FAERS Safety Report 23198459 (Version 1)
Quarter: 2023Q4

REPORT INFORMATION
  Report Type: Spontaneous
  Country: US (occurrence: None)
  Receive Date: 20231117
  Receipt Date: 20231117
  Transmission Date: 20240110
  Serious: Yes (Death)
  Sender: FDA-Public Use
  Company Number: None

PATIENT
  Age: 62 Year
  Sex: Female

DRUGS (1)
  1. XGEVA [Suspect]
     Active Substance: DENOSUMAB
     Dosage: FREQUENCY : MONTHLY;?
     Dates: start: 20231110

REACTIONS (1)
  - Death [None]

NARRATIVE: CASE EVENT DATE: 20231110
